FAERS Safety Report 19461370 (Version 1)
Quarter: 2021Q2

REPORT INFORMATION
  Report Type: Spontaneous
  Country: DE (occurrence: DE)
  Receive Date: 20210625
  Receipt Date: 20210625
  Transmission Date: 20210717
  Serious: Yes (Other)
  Sender: FDA-Public Use
  Company Number: DE-TEVA-2021-DE-1926578

PATIENT
  Age: 68 Year
  Sex: Male

DRUGS (35)
  1. PREDNISOLONE. [Suspect]
     Active Substance: PREDNISOLONE
     Dosage: TOTAL DOSE  (D106)
     Route: 042
  2. PREDNISOLONE. [Suspect]
     Active Substance: PREDNISOLONE
     Dosage: 50 MILLIGRAM DAILY; (D161)
     Route: 065
  3. PREDNISOLONE. [Suspect]
     Active Substance: PREDNISOLONE
     Dosage: 80 MILLIGRAM DAILY;
     Route: 065
  4. CICLOSPORIN [Suspect]
     Active Substance: CYCLOSPORINE
     Indication: DERMATITIS
     Route: 065
  5. ATEZOLIZUMAB. [Concomitant]
     Active Substance: ATEZOLIZUMAB
     Indication: FOLLICULAR LYMPHOMA STAGE IV
     Dosage: (D1 OF C2?6)
     Route: 065
     Dates: start: 2017
  6. POLATUZUMAB VEDOTIN. [Concomitant]
     Active Substance: POLATUZUMAB VEDOTIN
     Indication: FOLLICULAR LYMPHOMA STAGE IV
     Dosage: (D1 OF C1?6)
     Route: 065
     Dates: start: 2017
  7. TACROLIMUS. [Suspect]
     Active Substance: TACROLIMUS
     Indication: DRY EYE
  8. PREDNISOLONE. [Suspect]
     Active Substance: PREDNISOLONE
     Dosage: 100 MILLIGRAM DAILY; (D107)
     Route: 042
  9. INFLIXIMAB [Suspect]
     Active Substance: INFLIXIMAB
     Indication: DRY EYE
  10. RITUXIMAB. [Concomitant]
     Active Substance: RITUXIMAB
     Indication: FOLLICULAR LYMPHOMA STAGE IV
     Route: 065
     Dates: start: 2013, end: 2015
  11. VENETOCLAX. [Concomitant]
     Active Substance: VENETOCLAX
     Indication: FOLLICULAR LYMPHOMA STAGE IV
     Route: 065
     Dates: start: 2016
  12. BENDAMUSTINE HYDROCHLORIDE. [Suspect]
     Active Substance: BENDAMUSTINE HYDROCHLORIDE
     Indication: FOLLICULAR LYMPHOMA STAGE IV
     Route: 042
     Dates: start: 2013
  13. PREDNISOLONE. [Suspect]
     Active Substance: PREDNISOLONE
     Indication: DRY EYE
     Dosage: 100 MILLIGRAM DAILY;  (D84)
     Route: 048
  14. PREDNISOLONE. [Suspect]
     Active Substance: PREDNISOLONE
     Dosage: 90 MILLIGRAM DAILY;
     Route: 065
  15. PREDNISOLONE. [Suspect]
     Active Substance: PREDNISOLONE
     Dosage: 30 MILLIGRAM DAILY;  (D159)
     Route: 065
  16. PREDNISOLONE. [Suspect]
     Active Substance: PREDNISOLONE
     Indication: DERMATITIS
     Dosage: 10 MILLIGRAM DAILY; (D77)
     Route: 042
  17. PREDNISOLONE. [Suspect]
     Active Substance: PREDNISOLONE
     Dosage: 20 MILLIGRAM DAILY; (D86?100)
     Route: 048
  18. CICLOSPORIN [Suspect]
     Active Substance: CYCLOSPORINE
     Indication: STOMATITIS
  19. OBINUTUZUMAB. [Concomitant]
     Active Substance: OBINUTUZUMAB
     Indication: FOLLICULAR LYMPHOMA STAGE IV
     Dosage: (D1, D8, D15 OF C1; D1 OF C2?6)
     Route: 065
     Dates: start: 2017
  20. ANAKINRA [Suspect]
     Active Substance: ANAKINRA
     Indication: DERMATITIS
     Dosage: 100 MILLIGRAM DAILY;  (D203)
     Route: 058
  21. BENDAMUSTINE HYDROCHLORIDE. [Suspect]
     Active Substance: BENDAMUSTINE HYDROCHLORIDE
     Route: 042
     Dates: start: 2016
  22. TACROLIMUS. [Suspect]
     Active Substance: TACROLIMUS
     Indication: STOMATITIS
  23. PREDNISOLONE. [Suspect]
     Active Substance: PREDNISOLONE
     Dosage: 40 MILLIGRAM DAILY;  (D118?152)
     Route: 065
  24. PREDNISOLONE. [Suspect]
     Active Substance: PREDNISOLONE
     Dosage: 100 MILLIGRAM DAILY; (D164)
     Route: 065
  25. CICLOSPORIN [Suspect]
     Active Substance: CYCLOSPORINE
     Indication: DRY EYE
  26. INFLIXIMAB [Suspect]
     Active Substance: INFLIXIMAB
     Indication: STOMATITIS
  27. PREDNISOLONE. [Suspect]
     Active Substance: PREDNISOLONE
     Dosage: 70 MILLIGRAM DAILY; (D173?179)
     Route: 065
  28. PREDNISOLONE. [Suspect]
     Active Substance: PREDNISOLONE
     Dosage: 5 MILLIGRAM DAILY;  (D186?239)
     Route: 065
  29. TACROLIMUS. [Suspect]
     Active Substance: TACROLIMUS
     Indication: DERMATITIS
     Dosage: 1 MILLIGRAM DAILY; (D164)
     Route: 048
  30. PREDNISOLONE. [Suspect]
     Active Substance: PREDNISOLONE
     Indication: STOMATITIS
     Dosage: 100 MILLIGRAM DAILY;  (D78)
     Route: 042
  31. PREDNISOLONE. [Suspect]
     Active Substance: PREDNISOLONE
     Dosage: 60 MILLIGRAM DAILY;
     Route: 065
  32. INFLIXIMAB [Suspect]
     Active Substance: INFLIXIMAB
     Indication: DERMATITIS
     Dosage: (D112)
     Route: 042
  33. ANAKINRA [Suspect]
     Active Substance: ANAKINRA
     Indication: STOMATITIS
  34. ANAKINRA [Suspect]
     Active Substance: ANAKINRA
     Indication: DRY EYE
  35. RITUXIMAB. [Concomitant]
     Active Substance: RITUXIMAB
     Route: 065
     Dates: start: 2016

REACTIONS (9)
  - Bacteraemia [Recovered/Resolved]
  - Oral fungal infection [Recovered/Resolved]
  - Oral fungal infection [Unknown]
  - Product use in unapproved indication [Unknown]
  - Immune system disorder [Unknown]
  - Viral infection [Recovered/Resolved]
  - Opportunistic infection [Unknown]
  - Bronchopulmonary aspergillosis [Recovered/Resolved]
  - Erysipelas [Recovered/Resolved]
